FAERS Safety Report 24259149 (Version 1)
Quarter: 2024Q3

REPORT INFORMATION
  Report Type: Spontaneous
  Country: US (occurrence: US)
  Receive Date: 20240828
  Receipt Date: 20240828
  Transmission Date: 20241016
  Serious: No
  Sender: JOHNSON AND JOHNSON
  Company Number: US-JNJFOC-20240841853

PATIENT
  Age: 65 Year
  Sex: Female

DRUGS (2)
  1. WOMENS ROGAINE [Suspect]
     Active Substance: MINOXIDIL
     Indication: Alopecia
     Dosage: ONCE 5 DROPS
     Route: 061
     Dates: start: 20240813
  2. WOMENS ROGAINE [Suspect]
     Active Substance: MINOXIDIL
     Indication: Accidental exposure to product

REACTIONS (3)
  - Accidental exposure to product [Unknown]
  - Product administered at inappropriate site [Unknown]
  - Incorrect dose administered [Unknown]

NARRATIVE: CASE EVENT DATE: 20240813
